FAERS Safety Report 22808913 (Version 2)
Quarter: 2023Q4

REPORT INFORMATION
  Report Type: Spontaneous
  Country: US (occurrence: US)
  Receive Date: 20230810
  Receipt Date: 20231114
  Transmission Date: 20240110
  Serious: No
  Sender: FDA-Public Use
  Company Number: US-SA-SAC20230808001122

PATIENT
  Sex: Female

DRUGS (1)
  1. DUPIXENT [Suspect]
     Active Substance: DUPILUMAB
     Dosage: 300 MG, QOW
     Route: 058

REACTIONS (8)
  - Injection site pain [Unknown]
  - Product preparation error [Unknown]
  - Injection site pruritus [Unknown]
  - Product preparation error [Unknown]
  - Conjunctivitis [Recovered/Resolved]
  - Ocular hyperaemia [Recovered/Resolved]
  - Eye pruritus [Unknown]
  - Incorrect disposal of product [Unknown]
